FAERS Safety Report 4372213-9 (Version None)
Quarter: 2004Q2

REPORT INFORMATION
  Report Type: 
  Country: None (occurrence: None)
  Receive Date: 20040607
  Receipt Date: 20040526
  Transmission Date: 20050107
  Serious: Yes (Death)
  Sender: FDA-Public Use
  Company Number: BE-MERCK-0405BEL00041

PATIENT
  Age: 66 Year
  Sex: Male
  Weight: 78 kg

DRUGS (4)
  1. CANCIDAS [Suspect]
     Indication: ASPERGILLOSIS
     Route: 048
     Dates: start: 20031025, end: 20031025
  2. CANCIDAS [Suspect]
     Route: 042
     Dates: start: 20031026, end: 20031103
  3. CORTICOSTEROIDS (UNSPECIFIED) [Concomitant]
     Route: 065
  4. VFEND [Concomitant]
     Route: 048
     Dates: start: 20030801, end: 20031026

REACTIONS (2)
  - ASPERGILLOSIS [None]
  - DEATH [None]
